FAERS Safety Report 16862961 (Version 5)
Quarter: 2021Q1

REPORT INFORMATION
  Report Type: Report from Study
  Country: DE (occurrence: DE)
  Receive Date: 20190927
  Receipt Date: 20210324
  Transmission Date: 20210419
  Serious: Yes (Hospitalization, Other)
  Sender: FDA-Public Use
  Company Number: PHHY2019DE223282

PATIENT
  Age: 43 Year
  Sex: Male
  Weight: 95 kg

DRUGS (2)
  1. COSENTYX [Suspect]
     Active Substance: SECUKINUMAB
     Indication: PSORIATIC ARTHROPATHY
     Dosage: 300 MG, QMO
     Route: 058
  2. COSENTYX [Suspect]
     Active Substance: SECUKINUMAB
     Indication: PSORIASIS
     Dosage: 150 MG, UNKNOWN
     Route: 058
     Dates: start: 20160606, end: 20190625

REACTIONS (23)
  - Gastrointestinal disorder [Recovered/Resolved]
  - Adhesion [Recovered/Resolved]
  - General physical health deterioration [Unknown]
  - Colitis [Unknown]
  - Procedural nausea [Recovering/Resolving]
  - Cardiothoracic ratio increased [Unknown]
  - Abdominal pain lower [Recovered/Resolved]
  - Peritonitis [Recovered/Resolved]
  - Diverticulitis [Unknown]
  - Mechanical ileus [Recovered/Resolved]
  - Troponin increased [Unknown]
  - Appendicitis [Recovered/Resolved]
  - Pneumonia [Recovered/Resolved]
  - Intestinal atony [Recovered/Resolved]
  - Diarrhoea [Recovered/Resolved]
  - Abdominal abscess [Recovered/Resolved]
  - Fusobacterium test positive [Unknown]
  - Blood pressure abnormal [Unknown]
  - Intestinal dilatation [Unknown]
  - White blood cell count increased [Unknown]
  - Body temperature increased [Unknown]
  - Procedural vomiting [Recovering/Resolving]
  - Psoriasis [Unknown]

NARRATIVE: CASE EVENT DATE: 20190731
